FAERS Safety Report 5797304-7 (Version None)
Quarter: 2008Q3

REPORT INFORMATION
  Report Type: 
  Country: None (occurrence: None)
  Receive Date: 20080701
  Receipt Date: 20080620
  Transmission Date: 20090109
  Serious: Yes (Other)
  Sender: FDA-Public Use
  Company Number: GB-PFIZER INC-2008052692

PATIENT
  Age: 40 Year
  Sex: Male

DRUGS (2)
  1. SULFASALAZINE [Suspect]
  2. SIMVASTATIN [Concomitant]

REACTIONS (3)
  - ARTHRALGIA [None]
  - BACK PAIN [None]
  - PAIN [None]
